FAERS Safety Report 9428558 (Version 1)
Quarter: 2013Q3

REPORT INFORMATION
  Report Type: Spontaneous
  Country: US (occurrence: US)
  Receive Date: 20130730
  Receipt Date: 20130730
  Transmission Date: 20140515
  Serious: No
  Sender: FDA-Public Use
  Company Number: US-ABBOTT-12P-163-1017488-00

PATIENT
  Sex: Female
  Weight: 57.2 kg

DRUGS (5)
  1. NIASPAN (COATED) [Suspect]
     Indication: PRODUCT USED FOR UNKNOWN INDICATION
     Route: 048
  2. NIASPAN (COATED) [Suspect]
     Route: 048
     Dates: end: 20121201
  3. NIASPAN (COATED) [Suspect]
     Indication: PRODUCT USED FOR UNKNOWN INDICATION
     Route: 048
     Dates: start: 20121201
  4. COREG [Concomitant]
     Indication: HYPERTENSION
  5. ZESTRIL [Concomitant]
     Indication: HYPERTENSION

REACTIONS (6)
  - Influenza [Recovered/Resolved]
  - Medication error [Recovering/Resolving]
  - Diarrhoea [Recovering/Resolving]
  - Pruritus [Recovering/Resolving]
  - Dizziness [Recovering/Resolving]
  - Nausea [Recovering/Resolving]
